FAERS Safety Report 19086538 (Version 9)
Quarter: 2022Q3

REPORT INFORMATION
  Report Type: Spontaneous
  Country: IN (occurrence: IN)
  Receive Date: 20210402
  Receipt Date: 20220906
  Transmission Date: 20221026
  Serious: Yes (Other)
  Sender: FDA-Public Use
  Company Number: IN-PFIZER INC-2019118175

PATIENT
  Age: 52 Year
  Sex: Male

DRUGS (1)
  1. CRIZOTINIB [Suspect]
     Active Substance: CRIZOTINIB
     Indication: Non-small cell lung cancer metastatic
     Dosage: 250 MG, 2X/DAY
     Route: 048
     Dates: start: 20170910

REACTIONS (8)
  - Seizure [Unknown]
  - Pneumonia [Unknown]
  - COVID-19 [Unknown]
  - Tumour necrosis [Unknown]
  - Neoplasm progression [Unknown]
  - Cystitis [Unknown]
  - Prostatomegaly [Unknown]
  - Oedema peripheral [Unknown]
